FAERS Safety Report 24024875 (Version 2)
Quarter: 2024Q3

REPORT INFORMATION
  Report Type: Report from Study
  Country: IN (occurrence: IN)
  Receive Date: 20240628
  Receipt Date: 20240710
  Transmission Date: 20241017
  Serious: No
  Sender: ROCHE
  Company Number: IN-ROCHE-3349844

PATIENT
  Age: 49 Year
  Sex: Female
  Weight: 79.0 kg

DRUGS (1)
  1. PHESGO [Suspect]
     Active Substance: HYALURONIDASE-ZZXF\PERTUZUMAB\TRASTUZUMAB
     Indication: Breast cancer
     Route: 058
     Dates: start: 20220520

REACTIONS (3)
  - Hypertension [Unknown]
  - Herpes virus infection [Unknown]
  - Jaundice [Unknown]
